FAERS Safety Report 6290838-0 (Version None)
Quarter: 2009Q3

REPORT INFORMATION
  Report Type: 
  Country: None (occurrence: None)
  Receive Date: 20090729
  Receipt Date: 20090729
  Transmission Date: 20100115
  Serious: Yes (Hospitalization)
  Sender: FDA-Public Use
  Company Number: None

PATIENT
  Sex: Male
  Weight: 112 kg

DRUGS (10)
  1. OLANZAPINE [Suspect]
     Indication: POST-TRAUMATIC STRESS DISORDER
     Dosage: AS ABOVE
     Dates: start: 20070101
  2. ASPIRIN [Concomitant]
  3. CLONAZEPAM [Concomitant]
  4. VENLAFAXINE HYDROCHLORIDE [Concomitant]
  5. ATENOLOL [Concomitant]
  6. DOXAZOSIN MESYLATE [Concomitant]
  7. AMLODIPINE [Concomitant]
  8. ROSUVASTATIN CALCIUM [Concomitant]
  9. PRILOSEC [Concomitant]
  10. METFORMIN [Concomitant]

REACTIONS (1)
  - SURGERY [None]
